FAERS Safety Report 4847480-5 (Version None)
Quarter: 2005Q4

REPORT INFORMATION
  Report Type: 
  Country: None (occurrence: None)
  Receive Date: 20051205
  Receipt Date: 20051125
  Transmission Date: 20060501
  Serious: No
  Sender: FDA-Public Use
  Company Number: 2005-135144-NL

PATIENT
  Age: 22 Year
  Sex: Female

DRUGS (4)
  1. VECURONIUM BROMIDE [Suspect]
     Indication: INTUBATION
     Route: 042
  2. ATROPINE SULFATE [Concomitant]
  3. PETHILORPAN [Concomitant]
  4. PROPOFOL [Concomitant]

REACTIONS (5)
  - BREATH SOUNDS ABNORMAL [None]
  - BRONCHOSTENOSIS [None]
  - LUNG DISORDER [None]
  - OXYGEN SATURATION DECREASED [None]
  - PROCEDURAL COMPLICATION [None]
